FAERS Safety Report 23159292 (Version 2)
Quarter: 2023Q4

REPORT INFORMATION
  Report Type: Report from Study
  Country: US (occurrence: US)
  Receive Date: 20231108
  Receipt Date: 20231220
  Transmission Date: 20240110
  Serious: Yes (Hospitalization)
  Sender: FDA-Public Use
  Company Number: US-EXELIXIS-CABO-23070178

PATIENT
  Sex: Male
  Weight: 59.41 kg

DRUGS (1)
  1. CABOMETYX [Suspect]
     Active Substance: CABOZANTINIB S-MALATE
     Indication: Renal cancer
     Dosage: 40 MG, QD
     Route: 048
     Dates: start: 20231024

REACTIONS (5)
  - Renal pain [Unknown]
  - Ageusia [Unknown]
  - Pain [Unknown]
  - Blister [Unknown]
  - Stomatitis [Unknown]
